FAERS Safety Report 26030662 (Version 1)
Quarter: 2025Q4

REPORT INFORMATION
  Report Type: Spontaneous
  Country: US (occurrence: US)
  Receive Date: 20251112
  Receipt Date: 20251112
  Transmission Date: 20260118
  Serious: Yes (Hospitalization)
  Sender: SUPERNUS
  Company Number: US-SUP-SUP202510-004543

PATIENT
  Sex: Male

DRUGS (10)
  1. QELBREE [Suspect]
     Active Substance: VILOXAZINE HYDROCHLORIDE
     Indication: Product used for unknown indication
     Dosage: DOSE: 150MG
  2. SEROQUEL [Concomitant]
     Active Substance: QUETIAPINE FUMARATE
     Dosage: NOT PROVIDED
  3. GABAPENTIN [Concomitant]
     Active Substance: GABAPENTIN
     Dosage: NOT PROVIDED
  4. ZYRTEC [Concomitant]
     Active Substance: CETIRIZINE HYDROCHLORIDE
     Dosage: NOT PROVIDED
  5. ENALAPRIL [Concomitant]
     Active Substance: ENALAPRIL
     Dosage: NOT PROVIDED
  6. PEPCID [Concomitant]
     Active Substance: FAMOTIDINE
     Dosage: NOT PROVIDED
  7. FLONASE [Concomitant]
     Active Substance: FLUTICASONE PROPIONATE
     Dosage: NOT PROVIDED
  8. LANTUS [Concomitant]
     Active Substance: INSULIN GLARGINE
     Dosage: NOT PROVIDED
  9. INSULIN NOS [Concomitant]
     Active Substance: INSULIN NOS
     Dosage: NOT PROVIDED
  10. METFORMIN [Concomitant]
     Active Substance: METFORMIN HYDROCHLORIDE
     Dosage: NOT PROVIDED

REACTIONS (2)
  - Serotonin syndrome [Unknown]
  - Incorrect dose administered [Unknown]
